FAERS Safety Report 16046709 (Version 3)
Quarter: 2019Q2

REPORT INFORMATION
  Report Type: Report from Study
  Country: ES (occurrence: ES)
  Receive Date: 20190307
  Receipt Date: 20190401
  Transmission Date: 20190711
  Serious: Yes (Other)
  Sender: FDA-Public Use
  Company Number: ES-AEGERION PHARMACEUTICAL, INC-AEGR004165

PATIENT

DRUGS (4)
  1. LOJUXTA [Suspect]
     Active Substance: LOMITAPIDE MESYLATE
     Dosage: 10 MG, QD
     Dates: start: 20190308
  2. LOJUXTA [Suspect]
     Active Substance: LOMITAPIDE MESYLATE
     Indication: TYPE IIA HYPERLIPIDAEMIA
     Dosage: 60 MG, QD
     Route: 048
     Dates: end: 20190226
  3. EZETIMIBE. [Concomitant]
     Active Substance: EZETIMIBE
     Indication: PRODUCT USED FOR UNKNOWN INDICATION
     Dosage: 10 MG, UNK
  4. LOJUXTA [Suspect]
     Active Substance: LOMITAPIDE MESYLATE
     Dosage: 50 MG, QD
     Route: 048

REACTIONS (3)
  - Therapy cessation [Recovered/Resolved]
  - Liver function test increased [Recovered/Resolved]
  - Product administered to patient of inappropriate age [Unknown]

NARRATIVE: CASE EVENT DATE: 20190208
